FAERS Safety Report 9650796 (Version 1)
Quarter: 2013Q4

REPORT INFORMATION
  Report Type: Spontaneous
  Country: US (occurrence: None)
  Receive Date: 20131025
  Receipt Date: 20131025
  Transmission Date: 20140711
  Serious: No
  Sender: FDA-Public Use
  Company Number: None

PATIENT
  Age: 43 Year
  Sex: Female

DRUGS (1)
  1. AZITHROMYCIN [Suspect]
     Dosage: 2 TABS 1ST DOSE 1 TAB X 4, QD, ORAL
     Route: 048
     Dates: start: 20131019, end: 20131023

REACTIONS (11)
  - Asthenia [None]
  - Vision blurred [None]
  - Diarrhoea [None]
  - Dry mouth [None]
  - Cough [None]
  - Pyrexia [None]
  - Photosensitivity reaction [None]
  - Anger [None]
  - Irritability [None]
  - Depression [None]
  - Anxiety [None]
